FAERS Safety Report 18560273 (Version 3)
Quarter: 2021Q4

REPORT INFORMATION
  Report Type: Spontaneous
  Country: US (occurrence: US)
  Receive Date: 20201130
  Receipt Date: 20211014
  Transmission Date: 20220303
  Serious: Yes (Hospitalization, Other)
  Sender: FDA-Public Use
  Company Number: US-PFIZER INC-2017204412

PATIENT
  Age: 83 Year
  Sex: Female

DRUGS (36)
  1. LYRICA [Suspect]
     Active Substance: PREGABALIN
     Indication: Demyelinating polyneuropathy
     Dosage: 150 MG, 2X/DAY (BID)
     Route: 048
  2. LYRICA [Suspect]
     Active Substance: PREGABALIN
     Indication: Arthralgia
     Dosage: 200 MG, 1X/DAY (ONE HS)
     Route: 048
  3. LYRICA [Suspect]
     Active Substance: PREGABALIN
     Dosage: 600 MG, DAILY (150MG AM, 150MG AFTERNOON, 300MG PM)
     Route: 048
  4. LYRICA [Suspect]
     Active Substance: PREGABALIN
     Dosage: 800 MG, DAILY
     Route: 048
  5. LYRICA [Suspect]
     Active Substance: PREGABALIN
     Dosage: 50 MG, UNK
     Route: 048
  6. LYRICA [Suspect]
     Active Substance: PREGABALIN
     Dosage: 100 MG, 2X/DAY (LYRICA 50 MG CAP/2 CAPS P.O. BID (TWICE DAILY))
     Route: 048
  7. LYRICA [Suspect]
     Active Substance: PREGABALIN
     Dosage: 150 MG, 1X/DAY [3 P.O QHS (EVERY BEDTIME)/3 CAP HS (AT BEDTIME)]
     Route: 048
  8. LYRICA [Suspect]
     Active Substance: PREGABALIN
     Dosage: 250 MG, DAILY [2PO (ORAL) BID (TWICE A DAY) AND 3 AT HS (BED TIME)]
     Route: 048
  9. LYRICA [Suspect]
     Active Substance: PREGABALIN
     Dosage: 100 MG, 3X/DAY, (TAKE 2 CAPSULES 3 TIME DAILY)
  10. CALTRATE [Concomitant]
     Active Substance: CALCIUM CARBONATE
     Indication: Osteoporosis
     Dosage: 60 MG, 2X/DAY
  11. CELEBREX [Concomitant]
     Active Substance: CELECOXIB
     Indication: Osteoporosis
     Dosage: 200 MG, 1X/DAY
     Route: 048
  12. MINERALS\VITAMINS [Concomitant]
     Active Substance: MINERALS\VITAMINS
     Dosage: UNK, 2X/DAY
  13. CYMBALTA [Concomitant]
     Active Substance: DULOXETINE HYDROCHLORIDE
     Indication: Demyelinating polyneuropathy
     Dosage: 60 MG, 1X/DAY (TAKE W/FISH OIL)
  14. DIETARY SUPPLEMENT [Concomitant]
     Active Substance: DIETARY SUPPLEMENT
     Dosage: UNK, 2X/DAY
  15. FUROSEMIDE [Concomitant]
     Active Substance: FUROSEMIDE
     Indication: Fluid retention
     Dosage: 40 MG, UNK
  16. FUROSEMIDE [Concomitant]
     Active Substance: FUROSEMIDE
     Dosage: 20 MG, UNK
     Dates: start: 20170130
  17. FUROSEMIDE [Concomitant]
     Active Substance: FUROSEMIDE
     Dosage: 40 MG, 1X/DAY
     Dates: start: 20170210
  18. GLUCOSAMINE\GLUCOSAMINE SULFATE [Concomitant]
     Active Substance: GLUCOSAMINE\GLUCOSAMINE SULFATE
     Dosage: UNK, 2X/DAY
  19. POTASSIUM CHLORIDE [Concomitant]
     Active Substance: POTASSIUM CHLORIDE
     Dosage: 10 UG, DAILY (W/FUROSEMIDE)
     Dates: end: 20160127
  20. LIPITOR [Concomitant]
     Active Substance: ATORVASTATIN CALCIUM
     Indication: Hypocholesterolaemia
     Dosage: 20 MG, UNK
  21. LIPITOR [Concomitant]
     Active Substance: ATORVASTATIN CALCIUM
     Dosage: 40 MG, 1X/DAY
  22. LOSARTAN [Concomitant]
     Active Substance: LOSARTAN
     Indication: Hypertension
     Dosage: 50 MG, 1X/DAY
  23. NEXIUM [Concomitant]
     Active Substance: ESOMEPRAZOLE MAGNESIUM
     Indication: Gastrooesophageal reflux disease
     Dosage: 40 MG, 2X/DAY
  24. RECLAST [Concomitant]
     Active Substance: ZOLEDRONIC ACID
     Indication: Osteoporosis
     Dosage: UNK (YEARLY)
  25. SODIUM CHLORIDE [Concomitant]
     Active Substance: SODIUM CHLORIDE
     Indication: Hyponatraemia
     Dosage: 1 G, 2X/DAY
  26. SODIUM CHLORIDE [Concomitant]
     Active Substance: SODIUM CHLORIDE
     Indication: Inappropriate antidiuretic hormone secretion
  27. SYNTHROID [Concomitant]
     Active Substance: LEVOTHYROXINE SODIUM
     Indication: Hypothyroidism
     Dosage: 50 UG, DAILY
  28. MIRALAX [Concomitant]
     Active Substance: POLYETHYLENE GLYCOL 3350
     Indication: Constipation
     Dosage: UNK, 2X/DAY (1 CUP, MIX WITH BENEFIBER)
  29. HYDROCODONE [Concomitant]
     Active Substance: HYDROCODONE
     Indication: Chronic inflammatory demyelinating polyradiculoneuropathy
     Dosage: UNK, AS NEEDED (10-325MG, 1 DAY AS NEEDED)
  30. HYDROCODONE [Concomitant]
     Active Substance: HYDROCODONE
     Indication: Pain
  31. FE C [Concomitant]
     Indication: Decreased appetite
     Dosage: UNK, 1X/DAY
  32. ULTRAVATE [Concomitant]
     Active Substance: HALOBETASOL PROPIONATE
     Dosage: UNK, 1X/DAY (LEFT FOOT)
  33. SYSTANE (HYPROMELLOSE 2910 (4000 MPA.S)) [Concomitant]
     Active Substance: HYPROMELLOSE 2910 (4000 MPA.S)
     Indication: Macular degeneration
     Dosage: UNK, 2X/DAY
     Route: 047
  34. ARICEPT [Concomitant]
     Active Substance: DONEPEZIL HYDROCHLORIDE
     Indication: Memory impairment
     Dosage: 10 MG, 1X/DAY
  35. OCUVITE [Concomitant]
     Active Substance: VITAMINS
     Indication: Macular degeneration
     Dosage: UNK, 2X/DAY
  36. D-3 OMEGA [Concomitant]
     Dosage: UNK, 1X/DAY
     Dates: end: 20150909

REACTIONS (2)
  - Multiple fractures [Unknown]
  - Prescribed overdose [Unknown]
